FAERS Safety Report 6474252-0 (Version None)
Quarter: 2009Q4

REPORT INFORMATION
  Report Type: 
  Country: None (occurrence: None)
  Receive Date: 20091204
  Receipt Date: 20091125
  Transmission Date: 20100525
  Serious: Yes (Hospitalization, Other)
  Sender: FDA-Public Use
  Company Number: PHEH2009US15376

PATIENT
  Sex: Female

DRUGS (3)
  1. EXJADE [Suspect]
     Dosage: 1000 MG, DAILY
     Route: 048
     Dates: start: 20070505, end: 20091015
  2. FLECTOR [Concomitant]
     Dosage: 1.3 % BID
     Route: 062
     Dates: start: 20090410, end: 20091015
  3. CIPROFLOXACIN [Concomitant]
     Indication: NOCARDIOSIS
     Dosage: 750 MG, BID
     Route: 048
     Dates: start: 20070925

REACTIONS (9)
  - BRADYCARDIA [None]
  - CONGESTIVE CARDIOMYOPATHY [None]
  - HYPERTENSION [None]
  - HYPOKALAEMIA [None]
  - HYPOTENSION [None]
  - MENINGITIS CRYPTOCOCCAL [None]
  - MUSCLE DISORDER [None]
  - NEUTROPENIA [None]
  - NOCARDIOSIS [None]
